FAERS Safety Report 5924927-4 (Version None)
Quarter: 2008Q4

REPORT INFORMATION
  Report Type: 
  Country: None (occurrence: None)
  Receive Date: 20081020
  Receipt Date: 20081020
  Transmission Date: 20090506
  Serious: Yes (Other)
  Sender: FDA-Public Use
  Company Number: None

PATIENT
  Age: 48 Year
  Sex: Female
  Weight: 85.7298 kg

DRUGS (2)
  1. CYMBALTA [Suspect]
     Indication: DEPRESSION
     Dosage: 1 CAPSULE TWICE DAILY PO
     Route: 048
     Dates: start: 20080101, end: 20081024
  2. CYMBALTA [Suspect]
     Indication: FIBROMYALGIA
     Dosage: 1 CAPSULE TWICE DAILY PO
     Route: 048
     Dates: start: 20080101, end: 20081024

REACTIONS (11)
  - CRYING [None]
  - DRUG EFFECT DECREASED [None]
  - DRUG WITHDRAWAL SYNDROME [None]
  - EPILEPSY [None]
  - FEELING ABNORMAL [None]
  - FIBROMYALGIA [None]
  - MIGRAINE [None]
  - NECK PAIN [None]
  - SUICIDAL IDEATION [None]
  - TREMOR [None]
  - WEIGHT INCREASED [None]
